FAERS Safety Report 22161277 (Version 1)
Quarter: 2023Q1

REPORT INFORMATION
  Report Type: Spontaneous
  Country: AU (occurrence: AU)
  Receive Date: 20230331
  Receipt Date: 20230331
  Transmission Date: 20230418
  Serious: Yes (Hospitalization)
  Sender: FDA-Public Use
  Company Number: AU-EXELTIS PHARMACEUTICAL HOLDING, S.L.-2303AU01880

PATIENT
  Age: 26 Year
  Sex: Female
  Weight: 104 kg

DRUGS (3)
  1. DROSPIRENONE [Suspect]
     Active Substance: DROSPIRENONE
     Indication: Endometriosis
     Dosage: 4 MILLIGRAM, QD
     Route: 048
     Dates: start: 20230301, end: 20230315
  2. AMITRIPTYLINE [Concomitant]
     Active Substance: AMITRIPTYLINE
     Dosage: 25 MILLIGRAM, QD AT NIGHT
     Route: 048
     Dates: start: 202211
  3. MIRENA [Concomitant]
     Active Substance: LEVONORGESTREL
     Indication: Endometriosis
     Route: 015

REACTIONS (2)
  - Sinus tachycardia [Not Recovered/Not Resolved]
  - Product use in unapproved indication [Unknown]

NARRATIVE: CASE EVENT DATE: 20230301
